FAERS Safety Report 11251723 (Version 2)
Quarter: 2015Q3

REPORT INFORMATION
  Report Type: Spontaneous
  Country: US (occurrence: US)
  Receive Date: 20150708
  Receipt Date: 20150903
  Transmission Date: 20151125
  Serious: No
  Sender: FDA-Public Use
  Company Number: US-ELI_LILLY_AND_COMPANY-US201205005553

PATIENT
  Sex: Male
  Weight: 71.66 kg

DRUGS (2)
  1. CYMBALTA [Suspect]
     Active Substance: DULOXETINE HYDROCHLORIDE
     Indication: ANXIETY
     Dosage: 30 MG, QD
     Route: 048
     Dates: start: 20120509, end: 20120606
  2. PROZAC [Suspect]
     Active Substance: FLUOXETINE HYDROCHLORIDE
     Indication: DEPRESSION
     Dosage: UNK, UNKNOWN
     Dates: start: 2002

REACTIONS (13)
  - Panic attack [Recovered/Resolved]
  - Drug effect decreased [Recovered/Resolved]
  - Pain in extremity [Unknown]
  - Facial pain [Unknown]
  - Nausea [Unknown]
  - Tremor [Unknown]
  - Urinary hesitation [Recovered/Resolved]
  - Weight decreased [Recovered/Resolved]
  - Terminal insomnia [Unknown]
  - Influenza like illness [Unknown]
  - Decreased appetite [Recovered/Resolved]
  - Anxiety [Recovered/Resolved]
  - Urinary retention [Recovered/Resolved]
